FAERS Safety Report 4557781-6 (Version None)
Quarter: 2005Q1

REPORT INFORMATION
  Report Type: 
  Country: None (occurrence: None)
  Receive Date: 20050118
  Receipt Date: 20050107
  Transmission Date: 20050727
  Serious: Yes (Disabling)
  Sender: FDA-Public Use
  Company Number: GBWYE329211JAN05

PATIENT
  Age: 48 Year
  Sex: Male

DRUGS (2)
  1. EFFEXOR [Suspect]
     Indication: DEPRESSION
     Dosage: 37.5 MG 2X PER 1 DAY ORAL; 75 MG 1X PER 1 DAY ORAL
     Route: 048
     Dates: end: 20041201
  2. EFFEXOR [Suspect]
     Indication: DEPRESSION
     Dosage: 37.5 MG 2X PER 1 DAY ORAL; 75 MG 1X PER 1 DAY ORAL
     Route: 048
     Dates: start: 20041221, end: 20041224

REACTIONS (4)
  - DEPRESSED MOOD [None]
  - DRUG WITHDRAWAL SYNDROME [None]
  - NERVOUSNESS [None]
  - TEARFULNESS [None]
